FAERS Safety Report 5554896-0 (Version None)
Quarter: 2007Q4

REPORT INFORMATION
  Report Type: 
  Country: None (occurrence: None)
  Receive Date: 20071213
  Receipt Date: 20071130
  Transmission Date: 20080405
  Serious: Yes (Hospitalization)
  Sender: FDA-Public Use
  Company Number: BR-AMGEN-US247498

PATIENT
  Sex: Female
  Weight: 56 kg

DRUGS (10)
  1. ENBREL [Suspect]
     Indication: RHEUMATOID ARTHRITIS
     Route: 058
     Dates: start: 20070802
  2. EUTHYROX [Concomitant]
     Indication: HYPOTHYROIDISM
     Dosage: UNKNOWN
     Route: 048
  3. EUTHYROX [Concomitant]
     Dosage: UNKNOWN
     Route: 048
  4. CHLOROQUINE PHOSPHATE [Concomitant]
     Indication: RHEUMATOID ARTHRITIS
     Route: 048
     Dates: start: 20070101
  5. RANITIDINE HCL [Concomitant]
     Indication: GASTRITIS
     Route: 048
     Dates: start: 20070101
  6. FOLIC ACID [Concomitant]
     Route: 048
     Dates: start: 20070101
  7. ACETAMINOPHEN [Concomitant]
     Route: 048
     Dates: start: 20070101
  8. PREDNISONE [Concomitant]
     Indication: RHEUMATOID ARTHRITIS
     Route: 048
  9. METHOTREXATE [Concomitant]
     Indication: RHEUMATOID ARTHRITIS
     Route: 048
  10. PIROXICAM [Concomitant]
     Route: 048
     Dates: start: 20070101

REACTIONS (16)
  - CELLULITIS [None]
  - DYSPHONIA [None]
  - DYSPNOEA [None]
  - FEELING COLD [None]
  - HYPERKERATOSIS [None]
  - HYPERTENSION [None]
  - INJECTION SITE CELLULITIS [None]
  - INJECTION SITE REACTION [None]
  - NAIL INFECTION [None]
  - NASAL CONGESTION [None]
  - PAIN IN EXTREMITY [None]
  - SKIN DISORDER [None]
  - SKIN REACTION [None]
  - SOMNOLENCE [None]
  - SWELLING FACE [None]
  - WEIGHT INCREASED [None]
